FAERS Safety Report 16347223 (Version 5)
Quarter: 2022Q2

REPORT INFORMATION
  Report Type: Other
  Country: US (occurrence: None)
  Receive Date: 20190523
  Receipt Date: 20220419
  Transmission Date: 20220721
  Serious: Yes (Other)
  Sender: FDA-Public Use
  Company Number: US-ROCHE-2319314

PATIENT

DRUGS (6)
  1. TRASTUZUMAB [Suspect]
     Active Substance: TRASTUZUMAB
     Indication: Breast cancer metastatic
     Dosage: LOADING DOSE
     Route: 042
  2. TRASTUZUMAB [Suspect]
     Active Substance: TRASTUZUMAB
     Dosage: Q 21 DAYS
     Route: 042
  3. PERTUZUMAB [Suspect]
     Active Substance: PERTUZUMAB
     Indication: Breast cancer metastatic
     Dosage: LOADING DOSE
     Route: 042
  4. PERTUZUMAB [Suspect]
     Active Substance: PERTUZUMAB
     Dosage: Q 21 DAYS
     Route: 042
  5. PACLITAXEL [Suspect]
     Active Substance: PACLITAXEL
     Indication: Breast cancer metastatic
     Route: 042
  6. INTERFERON GAMMA [Suspect]
     Active Substance: INTERFERON GAMMA
     Indication: Breast cancer metastatic
     Route: 058

REACTIONS (8)
  - Pneumonitis [Unknown]
  - Pyrexia [Unknown]
  - Cardiac failure [Unknown]
  - Haematochezia [Unknown]
  - Diarrhoea [Unknown]
  - Nausea [Unknown]
  - Syncope [Unknown]
  - Rash [Unknown]
